FAERS Safety Report 7324516-3 (Version None)
Quarter: 2011Q1

REPORT INFORMATION
  Report Type: 
  Country: None (occurrence: None)
  Receive Date: 20110203
  Receipt Date: 20100804
  Transmission Date: 20110831
  Serious: Yes (Hospitalization)
  Sender: FDA-Public Use
  Company Number: 016780

PATIENT
  Age: 29 Year
  Sex: Female

DRUGS (3)
  1. KEPPRA [Suspect]
     Indication: EPILEPSY
     Dosage: (2000 MG)
  2. PRENATAL VITAMINS /01549301/ [Concomitant]
  3. FOLIC ACID [Concomitant]

REACTIONS (3)
  - PREGNANCY [None]
  - PREMATURE LABOUR [None]
  - URINARY TRACT INFECTION [None]
